FAERS Safety Report 5968214-7 (Version None)
Quarter: 2008Q4

REPORT INFORMATION
  Report Type: 
  Country: None (occurrence: None)
  Receive Date: 20081126
  Receipt Date: 20081121
  Transmission Date: 20090506
  Serious: Yes (Death, Hospitalization)
  Sender: FDA-Public Use
  Company Number: A0758377A

PATIENT
  Age: 61 Year
  Sex: Male
  Weight: 86.4 kg

DRUGS (3)
  1. AVANDIA [Suspect]
     Route: 065
     Dates: start: 20020101, end: 20080101
  2. LANTUS [Concomitant]
     Dates: start: 20030101, end: 20080101
  3. GLUCOTROL [Concomitant]
     Dates: start: 19980101, end: 20080101

REACTIONS (3)
  - CARDIAC ARREST [None]
  - CARDIAC FAILURE CONGESTIVE [None]
  - MYOCARDIAL INFARCTION [None]
